FAERS Safety Report 4565571-3 (Version None)
Quarter: 2005Q1

REPORT INFORMATION
  Report Type: 
  Country: None (occurrence: None)
  Receive Date: 20050125
  Receipt Date: 20050125
  Transmission Date: 20050727
  Serious: Yes (Hospitalization)
  Sender: FDA-Public Use
  Company Number: None

PATIENT
  Age: 51 Year
  Sex: Male
  Weight: 88.2 kg

DRUGS (9)
  1. PEGINTERFERON ALPHA  2B+RIBAVIR [Suspect]
     Indication: HEPATITIS C
     Dosage: 130MG Q,  SC/PO
     Route: 058
     Dates: start: 20040317, end: 20040418
  2. SIMVASTATIN [Concomitant]
  3. HYDROCHLOROTHIAZIDE [Concomitant]
  4. LISINOPRIL [Concomitant]
  5. OMEPRAZOLE [Concomitant]
  6. METOCLOPRAMIDE HCL [Concomitant]
  7. PEGINTERFERON ALPHA-2B [Concomitant]
  8. RIBAVIRIN [Concomitant]
  9. RIBAVIRIN [Suspect]

REACTIONS (5)
  - ANAEMIA [None]
  - NAUSEA [None]
  - RASH [None]
  - THROMBOCYTOPENIA [None]
  - VOMITING [None]
